FAERS Safety Report 15219474 (Version 3)
Quarter: 2018Q3

REPORT INFORMATION
  Report Type: Report from Study
  Country: None (occurrence: CO)
  Receive Date: 20180731
  Receipt Date: 20180906
  Transmission Date: 20181010
  Serious: Yes (Hospitalization, Other)
  Sender: FDA-Public Use
  Company Number: CO-ABBVIE-18K-036-2435930-00

PATIENT
  Age: 65 Year
  Sex: Male

DRUGS (2)
  1. HUMIRA [Suspect]
     Active Substance: ADALIMUMAB
     Indication: RHEUMATOID ARTHRITIS
     Route: 058
     Dates: start: 20170728, end: 20180531
  2. METHOTREXATE. [Concomitant]
     Active Substance: METHOTREXATE
     Indication: PRODUCT USED FOR UNKNOWN INDICATION

REACTIONS (11)
  - Postoperative wound infection [Recovering/Resolving]
  - Dysuria [Recovering/Resolving]
  - Peritonitis [Recovering/Resolving]
  - Post procedural complication [Unknown]
  - Inflammation [Unknown]
  - Back pain [Unknown]
  - Pain in extremity [Unknown]
  - Synovial cyst [Recovering/Resolving]
  - Prostate cancer [Recovering/Resolving]
  - Wound complication [Unknown]
  - Immunosuppression [Unknown]

NARRATIVE: CASE EVENT DATE: 201805
